FAERS Safety Report 8239909-X (Version None)
Quarter: 2012Q1

REPORT INFORMATION
  Report Type: 
  Country: None (occurrence: None)
  Receive Date: 20120328
  Receipt Date: 20120320
  Transmission Date: 20120608
  Serious: Yes (Disabling, Other)
  Sender: FDA-Public Use
  Company Number: AU-JNJFOC-20110809001

PATIENT
  Sex: Female
  Weight: 78 kg

DRUGS (10)
  1. REMICADE [Suspect]
     Dosage: WEEK 6
     Route: 042
     Dates: start: 20110117
  2. REMICADE [Suspect]
     Dosage: WEEK 6
     Route: 042
     Dates: start: 20110117
  3. REMICADE [Suspect]
     Dosage: WEEK 0
     Route: 042
     Dates: start: 20101206
  4. REMICADE [Suspect]
     Indication: INFLAMMATORY BOWEL DISEASE
     Route: 042
     Dates: start: 20110511
  5. REMICADE [Suspect]
     Dosage: WEEK 2
     Route: 042
     Dates: start: 20101221
  6. REMICADE [Suspect]
     Dosage: WEEK 0
     Route: 042
     Dates: start: 20101206
  7. REMICADE [Suspect]
     Indication: CROHN'S DISEASE
     Route: 042
     Dates: start: 20110511
  8. REMICADE [Suspect]
     Dosage: WEEK 8
     Route: 042
     Dates: start: 20110315
  9. REMICADE [Suspect]
     Dosage: WEEK 8
     Route: 042
     Dates: start: 20110315
  10. REMICADE [Suspect]
     Dosage: WEEK 2
     Route: 042
     Dates: start: 20101221

REACTIONS (2)
  - LUPUS-LIKE SYNDROME [None]
  - HEPATIC FUNCTION ABNORMAL [None]
